FAERS Safety Report 8880332 (Version 1)
Quarter: 2012Q4

REPORT INFORMATION
  Report Type: 
  Country: US (occurrence: US)
  Receive Date: 20121031
  Receipt Date: 20121031
  Transmission Date: 20130627
  Serious: Yes (Other)
  Sender: FDA-Public Use
  Company Number: US-ASTRAZENECA-2012SE80356

PATIENT
  Age: 69 Year
  Sex: Male
  Weight: 81.2 kg

DRUGS (5)
  1. NEXIUM [Suspect]
     Route: 048
  2. ALPHAGAN P [Concomitant]
     Route: 047
  3. DEXILANT [Concomitant]
  4. TIMOLOL [Concomitant]
     Route: 047
  5. TRAVATAN Z [Concomitant]
     Route: 047

REACTIONS (18)
  - Lymphoma [Unknown]
  - Thrombocytopenia [Unknown]
  - Anaemia [Unknown]
  - Weight increased [Unknown]
  - Hypoaesthesia [Unknown]
  - Abdominal distension [Unknown]
  - Oedema [Unknown]
  - Decreased appetite [Unknown]
  - Gastrooesophageal reflux disease [Unknown]
  - Gastrooesophageal reflux disease [Unknown]
  - Large intestine polyp [Unknown]
  - Gastritis [Unknown]
  - Benign prostatic hyperplasia [Unknown]
  - Abdominal pain [Unknown]
  - Abdominal pain upper [Unknown]
  - Dizziness [Unknown]
  - Alopecia [Unknown]
  - Flatulence [Unknown]
